FAERS Safety Report 24751682 (Version 1)
Quarter: 2024Q4

REPORT INFORMATION
  Report Type: Report from Study
  Country: US (occurrence: US)
  Receive Date: 20241219
  Receipt Date: 20241219
  Transmission Date: 20250115
  Serious: Yes (Other)
  Sender: ROCHE
  Company Number: US-ROCHE-3446140

PATIENT
  Age: 57 Year
  Sex: Female

DRUGS (10)
  1. HERCEPTIN [Suspect]
     Active Substance: TRASTUZUMAB
     Indication: Breast cancer female
     Route: 041
  2. HERCEPTIN [Suspect]
     Active Substance: TRASTUZUMAB
     Indication: Oestrogen receptor assay positive
  3. PERJETA [Suspect]
     Active Substance: PERTUZUMAB
     Indication: Breast cancer female
     Route: 042
  4. PERJETA [Suspect]
     Active Substance: PERTUZUMAB
     Indication: Oestrogen receptor assay positive
  5. MORPHINE [Concomitant]
     Active Substance: MORPHINE
  6. ALBUTEROL [Concomitant]
     Active Substance: ALBUTEROL
  7. IBUPROFEN [Concomitant]
     Active Substance: IBUPROFEN
  8. MIRTAZAPINE [Concomitant]
     Active Substance: MIRTAZAPINE
  9. OXYCODONE [Concomitant]
     Active Substance: OXYCODONE
  10. NALOXONE [Concomitant]
     Active Substance: NALOXONE

REACTIONS (18)
  - Essential hypertension [Unknown]
  - Colon cancer [Unknown]
  - Lumbar radiculopathy [Unknown]
  - Headache [Unknown]
  - Back pain [Unknown]
  - Peroneal nerve palsy [Unknown]
  - Spinal osteoarthritis [Unknown]
  - Metastases to bone [Unknown]
  - Arthralgia [Unknown]
  - Stress fracture [Unknown]
  - Major depression [Unknown]
  - Dementia [Unknown]
  - Obesity [Unknown]
  - Fibroadenoma of breast [Unknown]
  - Off label use [Unknown]
  - Diarrhoea [Unknown]
  - Hypokalaemia [Unknown]
  - Febrile neutropenia [Unknown]
